FAERS Safety Report 6046584-1 (Version None)
Quarter: 2009Q1

REPORT INFORMATION
  Report Type: 
  Country: None (occurrence: None)
  Receive Date: 20090122
  Receipt Date: 20090113
  Transmission Date: 20090719
  Serious: Yes (Hospitalization, Other)
  Sender: FDA-Public Use
  Company Number: PHHY2009BR01681

PATIENT
  Sex: Female
  Weight: 78 kg

DRUGS (5)
  1. COMBIPATCH [Suspect]
     Dosage: 50/140 MCG
     Route: 062
     Dates: start: 20050701
  2. COMBIPATCH [Suspect]
     Dosage: UNK
     Route: 062
     Dates: start: 20081223
  3. MAGNESIUM PIDOLATE [Concomitant]
     Indication: ARRHYTHMIA
     Dosage: 1 AMPOULE EVERY 15 DAYS
     Route: 048
     Dates: start: 20070701
  4. LIPITOR [Concomitant]
     Indication: LOW DENSITY LIPOPROTEIN INCREASED
     Dosage: 10 MG, HALF TAB QOD
     Route: 048
     Dates: start: 20081201
  5. LOSARTAN POTASSIUM [Concomitant]
     Indication: HYPERTENSION
     Dosage: 50 MG, STARTED AROUND MAY-JUL 2008
     Route: 048

REACTIONS (8)
  - ABDOMINAL DISTENSION [None]
  - ABDOMINAL PAIN [None]
  - ASTHENIA [None]
  - FOOD POISONING [None]
  - GASTRITIS [None]
  - GASTROINTESTINAL INFECTION [None]
  - PAIN [None]
  - VOMITING [None]
